FAERS Safety Report 5105508-1 (Version None)
Quarter: 2006Q3

REPORT INFORMATION
  Report Type: 
  Country: None (occurrence: None)
  Receive Date: 20060915
  Receipt Date: 20060902
  Transmission Date: 20061208
  Serious: Yes (Hospitalization)
  Sender: FDA-Public Use
  Company Number: TH-BRISTOL-MYERS SQUIBB COMPANY-13504030

PATIENT
  Age: 40 Year
  Sex: Female
  Weight: 52 kg

DRUGS (12)
  1. IFOMIDE [Suspect]
     Indication: CHEMOTHERAPY
     Dates: start: 20060525
  2. CISPLATIN [Suspect]
     Indication: CHEMOTHERAPY
     Dates: start: 20060525
  3. NORMAL SALINE [Concomitant]
  4. POTASSIUM CHLORIDE [Concomitant]
  5. MAGNESIUM SULFATE [Concomitant]
  6. MESNA [Concomitant]
  7. DEXAMETHASONE TAB [Concomitant]
  8. ONDANSETRON [Concomitant]
  9. PLASIL [Concomitant]
  10. DEXTROSE [Concomitant]
  11. OMEPRAZOLE [Concomitant]
     Indication: ABDOMINAL DISCOMFORT
  12. OMEPRAZOLE [Concomitant]
     Indication: DYSPEPSIA

REACTIONS (1)
  - GASTRITIS [None]
